FAERS Safety Report 6431144-0 (Version None)
Quarter: 2009Q4

REPORT INFORMATION
  Report Type: 
  Country: None (occurrence: None)
  Receive Date: 20091105
  Receipt Date: 20091105
  Transmission Date: 20100525
  Serious: No
  Sender: FDA-Public Use
  Company Number: None

PATIENT
  Age: 59 Year
  Sex: Male
  Weight: 118.2 kg

DRUGS (1)
  1. FUROSEMIDE IV 80MG ABBOTT LABORATORIES [Suspect]
     Indication: DIURETIC THERAPY
     Dosage: 80MG ONE DOSE INTRAVENOUSLY
     Dates: start: 20090711

REACTIONS (4)
  - DISCOMFORT [None]
  - DIZZINESS [None]
  - INCORRECT DRUG ADMINISTRATION RATE [None]
  - PARAESTHESIA [None]
